FAERS Safety Report 6453132-0 (Version None)
Quarter: 2009Q4

REPORT INFORMATION
  Report Type: 
  Country: None (occurrence: None)
  Receive Date: 20091124
  Receipt Date: 20091113
  Transmission Date: 20100525
  Serious: Yes (Other)
  Sender: FDA-Public Use
  Company Number: DE-PFIZER INC-2008150251

PATIENT
  Age: 45 Year
  Sex: Male

DRUGS (1)
  1. DOXYCYCLINE HYCLATE [Suspect]
     Dosage: UNK
     Route: 048
     Dates: start: 20070501, end: 20070101

REACTIONS (1)
  - DYSAESTHESIA [None]
